FAERS Safety Report 9923988 (Version 1)
Quarter: 2014Q1

REPORT INFORMATION
  Report Type: Spontaneous
  Country: GB (occurrence: GB)
  Receive Date: 20140225
  Receipt Date: 20140225
  Transmission Date: 20141002
  Serious: Yes (Other)
  Sender: FDA-Public Use
  Company Number: PHHY2014GB021539

PATIENT
  Sex: 0

DRUGS (1)
  1. METFORMIN [Suspect]
     Route: 064

REACTIONS (8)
  - Hypertrophic cardiomyopathy [Recovered/Resolved]
  - Foetal distress syndrome [Unknown]
  - Metabolic acidosis [Unknown]
  - Apgar score low [Unknown]
  - Foetal hypokinesia [Unknown]
  - Polyhydramnios [Unknown]
  - Premature baby [Unknown]
  - Foetal exposure during pregnancy [Unknown]
